FAERS Safety Report 6341447-6 (Version None)
Quarter: 2009Q3

REPORT INFORMATION
  Report Type: 
  Country: None (occurrence: None)
  Receive Date: 20090904
  Receipt Date: 20090825
  Transmission Date: 20100115
  Serious: Yes (Other)
  Sender: FDA-Public Use
  Company Number: NZ-MYLANLABS-2009S1015124

PATIENT
  Age: 18 Year
  Sex: Male

DRUGS (1)
  1. DOXINE [Suspect]
     Indication: ACNE
     Route: 048
     Dates: start: 20090313

REACTIONS (1)
  - BRADYCARDIA [None]
